FAERS Safety Report 5076915-0 (Version None)
Quarter: 2006Q3

REPORT INFORMATION
  Report Type: 
  Country: None (occurrence: None)
  Receive Date: 20060810
  Receipt Date: 20020123
  Transmission Date: 20061208
  Serious: Yes (Other)
  Sender: FDA-Public Use
  Company Number: 2002SE03692

PATIENT
  Age: 37 Year
  Sex: Female

DRUGS (13)
  1. SEROQUEL [Suspect]
     Indication: SCHIZOPHRENIA
     Route: 048
     Dates: start: 20011106, end: 20011106
  2. SEROQUEL [Suspect]
     Route: 048
     Dates: start: 20011107, end: 20011107
  3. SEROQUEL [Suspect]
     Route: 048
     Dates: start: 20011108, end: 20011110
  4. SEROQUEL [Suspect]
     Route: 048
     Dates: start: 20011111, end: 20011111
  5. SEROQUEL [Suspect]
     Route: 048
     Dates: start: 20011112, end: 20011118
  6. SEROQUEL [Suspect]
     Route: 048
     Dates: start: 20011119, end: 20011125
  7. SEROQUEL [Suspect]
     Route: 048
     Dates: start: 20011126, end: 20011128
  8. SOLIAN [Suspect]
     Indication: SCHIZOPHRENIA
     Route: 048
     Dates: start: 20011025, end: 20011028
  9. SOLIAN [Suspect]
     Route: 048
     Dates: start: 20011029, end: 20011105
  10. SOLIAN [Suspect]
     Route: 048
     Dates: start: 20011106, end: 20011108
  11. SOLIAN [Suspect]
     Route: 048
     Dates: start: 20011109, end: 20011110
  12. RISPERDAL [Suspect]
     Indication: SCHIZOPHRENIA
     Route: 048
     Dates: start: 20011129
  13. BACTRIM DS [Concomitant]
     Route: 048
     Dates: start: 20011030, end: 20011102

REACTIONS (3)
  - ANXIETY [None]
  - BREAST PAIN [None]
  - GALACTORRHOEA [None]
